FAERS Safety Report 16256082 (Version 1)
Quarter: 2019Q2

REPORT INFORMATION
  Report Type: Spontaneous
  Country: US (occurrence: US)
  Receive Date: 20190430
  Receipt Date: 20190430
  Transmission Date: 20190711
  Serious: Yes (Hospitalization, Other)
  Sender: FDA-Public Use
  Company Number: US-ROCHE-2306413

PATIENT
  Sex: Female

DRUGS (8)
  1. RITUXAN [Suspect]
     Active Substance: RITUXIMAB
     Route: 042
     Dates: start: 20190313
  2. BENADRYL [Concomitant]
     Active Substance: DIPHENHYDRAMINE HYDROCHLORIDE
     Indication: PREMEDICATION
     Dosage: THREE 25 MG UNITS (75 MG TOTAL GIVEN AS ONE DOSE)
     Route: 048
  3. METHYLPREDNISOLONE. [Concomitant]
     Active Substance: METHYLPREDNISOLONE
     Indication: PREMEDICATION
     Dosage: TWO TO FOUR DOSES GIVEN (8 TO 16 MG TOTAL)
     Route: 048
  4. RITUXAN [Suspect]
     Active Substance: RITUXIMAB
     Route: 042
     Dates: start: 20190228
  5. RITUXAN [Suspect]
     Active Substance: RITUXIMAB
     Indication: RHEUMATOID ARTHRITIS
     Dosage: ONGOING; YES
     Route: 041
     Dates: start: 201710
  6. PROTONIX [Concomitant]
     Active Substance: PANTOPRAZOLE SODIUM
     Dosage: ONGOING;YES
     Route: 048
  7. PERCOCET [Concomitant]
     Active Substance: ACETAMINOPHEN\OXYCODONE HYDROCHLORIDE
     Indication: PREMEDICATION
     Dosage: TABLET STRENGTH 10/325MG (OXYCODONE/ACETAMINOPHEN)
     Route: 048
  8. ALIGN [Concomitant]
     Active Substance: BIFIDOBACTERIUM LONGUM SUBSP. INFANTIS
     Dosage: ONGOING YES
     Route: 048

REACTIONS (15)
  - Hypertension [Unknown]
  - Fungal infection [Recovered/Resolved]
  - Head injury [Recovered/Resolved]
  - Loss of consciousness [Unknown]
  - Upper limb fracture [Unknown]
  - Urinary incontinence [Recovered/Resolved]
  - Rash erythematous [Recovered/Resolved]
  - Throat tightness [Recovered/Resolved]
  - Hypersomnia [Recovered/Resolved]
  - Malaise [Recovered/Resolved]
  - Limb injury [Unknown]
  - Urticaria [Recovered/Resolved]
  - Dyspnoea [Recovered/Resolved]
  - Ileus [Recovered/Resolved]
  - Adrenal mass [Not Recovered/Not Resolved]

NARRATIVE: CASE EVENT DATE: 201710
